FAERS Safety Report 5419104-X (Version None)
Quarter: 2007Q3

REPORT INFORMATION
  Report Type: 
  Country: None (occurrence: None)
  Receive Date: 20070820
  Receipt Date: 20070816
  Transmission Date: 20080115
  Serious: Yes (Death)
  Sender: FDA-Public Use
  Company Number: NZ-ELI_LILLY_AND_COMPANY-NZ200707006081

PATIENT
  Age: 43 Year
  Sex: Female
  Weight: 115.65 kg

DRUGS (2)
  1. ZYPREXA [Suspect]
     Indication: DELUSIONAL DISORDER, UNSPECIFIED TYPE
     Dosage: 15 MG, DAILY (1/D)
     Route: 048
     Dates: start: 20070319, end: 20070709
  2. ZYPREXA [Suspect]
     Dosage: 5 MG, DAILY (1/D)
     Route: 048
     Dates: start: 20070710

REACTIONS (2)
  - COMPLETED SUICIDE [None]
  - DEPRESSION [None]
